FAERS Safety Report 4279170-4 (Version None)
Quarter: 2004Q1

REPORT INFORMATION
  Report Type: 
  Country: None (occurrence: None)
  Receive Date: 20040123
  Receipt Date: 20040123
  Transmission Date: 20041129
  Serious: No
  Sender: FDA-Public Use
  Company Number: None

PATIENT
  Sex: 0

DRUGS (3)
  1. OCUVITE WITH LUTIN; BAUSCH AND LOMB [Suspect]
     Indication: MACULAR DEGENERATION
     Dosage: 1 PO QD
     Route: 048
  2. ATENOLOL [Concomitant]
  3. PREMARIN [Concomitant]

REACTIONS (4)
  - FEELING ABNORMAL [None]
  - HYPOAESTHESIA [None]
  - PHARMACEUTICAL PRODUCT COMPLAINT [None]
  - VISUAL DISTURBANCE [None]
